FAERS Safety Report 6333657-9 (Version None)
Quarter: 2009Q3

REPORT INFORMATION
  Report Type: 
  Country: None (occurrence: None)
  Receive Date: 20090829
  Receipt Date: 20090531
  Transmission Date: 20100115
  Serious: No
  Sender: FDA-Public Use
  Company Number: US-ABBOTT-09P-163-0575409-00

PATIENT
  Sex: Female
  Weight: 86.26 kg

DRUGS (8)
  1. SIMCOR [Suspect]
     Indication: BLOOD CHOLESTEROL INCREASED
     Dosage: 1 TABLET  DAILY AT HOUR OF SLEEP
     Route: 048
     Dates: start: 20080701, end: 20080801
  2. SIMCOR [Suspect]
     Dosage: 2 TABS DAILY AT HOUR OF SLEEP
     Route: 048
     Dates: start: 20080801
  3. ACIPHEX [Suspect]
     Indication: GASTROOESOPHAGEAL REFLUX DISEASE
     Dosage: DAILY IN THE MORNING
     Route: 048
     Dates: start: 20090501
  4. ALLEGRA [Concomitant]
     Indication: HYPERSENSITIVITY
  5. VITAMINS [Concomitant]
     Indication: DRUG USE FOR UNKNOWN INDICATION
  6. FISH OIL [Concomitant]
     Indication: DRUG USE FOR UNKNOWN INDICATION
  7. HYDROCHLOROTHIAZIDE [Concomitant]
     Indication: DRUG USE FOR UNKNOWN INDICATION
  8. ASPIRIN [Concomitant]
     Indication: DRUG USE FOR UNKNOWN INDICATION
     Dosage: DAILY BEFORE TAKES SIMCOR
     Route: 051

REACTIONS (4)
  - ABDOMINAL PAIN [None]
  - FEELING HOT [None]
  - HEART RATE INCREASED [None]
  - ILL-DEFINED DISORDER [None]
